FAERS Safety Report 20468202 (Version 3)
Quarter: 2023Q4

REPORT INFORMATION
  Report Type: Spontaneous
  Country: US (occurrence: US)
  Receive Date: 20220214
  Receipt Date: 20231003
  Transmission Date: 20240109
  Serious: No
  Sender: FDA-Public Use
  Company Number: US-ALXN-A202201832

PATIENT
  Sex: Female

DRUGS (1)
  1. STRENSIQ [Suspect]
     Active Substance: ASFOTASE ALFA
     Indication: Hypophosphatasia
     Dosage: UNK
     Route: 065

REACTIONS (7)
  - Anxiety [Unknown]
  - Behaviour disorder [Unknown]
  - Post-traumatic stress disorder [Unknown]
  - Pain in extremity [Not Recovered/Not Resolved]
  - Scoliosis [Unknown]
  - Limb asymmetry [Unknown]
  - Injection site pain [Unknown]
